FAERS Safety Report 15043220 (Version 3)
Quarter: 2019Q2

REPORT INFORMATION
  Report Type: Report from Study
  Country: None (occurrence: CA)
  Receive Date: 20180621
  Receipt Date: 20190514
  Transmission Date: 20190711
  Serious: Yes (Other)
  Sender: FDA-Public Use
  Company Number: CA-ABBVIE-18K-028-2368910-00

PATIENT
  Age: 40 Year
  Sex: Female

DRUGS (2)
  1. HUMIRA [Suspect]
     Active Substance: ADALIMUMAB
     Indication: HIDRADENITIS
     Route: 058
     Dates: start: 20170530, end: 20180312
  2. KEFLEX [Concomitant]
     Active Substance: CEPHALEXIN
     Indication: WOUND TREATMENT
     Route: 048
     Dates: start: 20180417, end: 20180501

REACTIONS (5)
  - Abortion spontaneous [Unknown]
  - Streptococcal infection [Recovered/Resolved]
  - Chills [Recovered/Resolved]
  - Exposure during pregnancy [Unknown]
  - Scar [Recovered/Resolved with Sequelae]

NARRATIVE: CASE EVENT DATE: 2018
